FAERS Safety Report 26207529 (Version 1)
Quarter: 2025Q4

REPORT INFORMATION
  Report Type: Report from Study
  Country: US (occurrence: US)
  Receive Date: 20251229
  Receipt Date: 20251229
  Transmission Date: 20260118
  Serious: Yes (Other)
  Sender: ALEXION PHARMACEUTICALS
  Company Number: US-ASTRAZENECA-202512NAM020767US

PATIENT
  Age: 14 Year
  Sex: Female

DRUGS (1)
  1. STRENSIQ [Suspect]
     Active Substance: ASFOTASE ALFA
     Indication: Phosphorus metabolism disorder
     Dosage: 80 MILLIGRAM, TIW
     Route: 065

REACTIONS (8)
  - Nephrocalcinosis [Unknown]
  - Immunology test abnormal [Unknown]
  - Arthralgia [Unknown]
  - Splenomegaly [Unknown]
  - Conjunctival disorder [Unknown]
  - Creatine urine decreased [Unknown]
  - Blood phosphorus increased [Unknown]
  - Vitamin D decreased [Unknown]
